FAERS Safety Report 18564681 (Version 2)
Quarter: 2020Q4

REPORT INFORMATION
  Report Type: Spontaneous
  Country: JP (occurrence: JP)
  Receive Date: 20201201
  Receipt Date: 20201211
  Transmission Date: 20210114
  Serious: Yes (Death, Other)
  Sender: FDA-Public Use
  Company Number: JP-VIIV HEALTHCARE LIMITED-JP2020JPN234759

PATIENT
  Age: 7 Decade
  Sex: Male
  Weight: 80 kg

DRUGS (2)
  1. TIVICAY [Suspect]
     Active Substance: DOLUTEGRAVIR SODIUM
     Indication: HIV INFECTION
     Dosage: UNK
     Route: 048
  2. EPZICOM [Suspect]
     Active Substance: ABACAVIR SULFATE\LAMIVUDINE
     Indication: HIV INFECTION
     Dosage: UNK
     Route: 048

REACTIONS (9)
  - Gastric cancer [Fatal]
  - Hypertrophy [Unknown]
  - General physical health deterioration [Unknown]
  - Dyspnoea [Fatal]
  - Ascites [Fatal]
  - Metastases to peritoneum [Unknown]
  - Signet-ring cell carcinoma [Fatal]
  - Abdominal distension [Fatal]
  - Abdominal lymphadenopathy [Unknown]
